FAERS Safety Report 20859199 (Version 5)
Quarter: 2023Q1

REPORT INFORMATION
  Report Type: Report from Study
  Country: US (occurrence: US)
  Receive Date: 20220523
  Receipt Date: 20230202
  Transmission Date: 20230417
  Serious: No
  Sender: FDA-Public Use
  Company Number: US-NOVARTISTESTPH-NVSC2022US116980

PATIENT
  Age: 64 Year
  Sex: Female

DRUGS (1)
  1. KESIMPTA [Suspect]
     Active Substance: OFATUMUMAB
     Indication: Relapsing multiple sclerosis
     Dosage: 20 MG, QMO
     Route: 058
     Dates: start: 20211123

REACTIONS (3)
  - Nasal congestion [Unknown]
  - Seasonal allergy [Unknown]
  - Weight decreased [Unknown]

NARRATIVE: CASE EVENT DATE: 20220418
